FAERS Safety Report 5511764-8 (Version None)
Quarter: 2007Q4

REPORT INFORMATION
  Report Type: 
  Country: None (occurrence: None)
  Receive Date: 20071109
  Receipt Date: 20071030
  Transmission Date: 20080405
  Serious: Yes (Life-Threatening, Other)
  Sender: FDA-Public Use
  Company Number: JP-PFIZER INC-2007091841

PATIENT
  Age: 65 Year
  Sex: Female

DRUGS (3)
  1. CYTOTEC [Suspect]
     Indication: PROPHYLAXIS AGAINST GASTROINTESTINAL ULCER
     Route: 048
     Dates: start: 20071023, end: 20071027
  2. LOXONIN [Suspect]
     Indication: WOUND ABSCESS
     Route: 048
     Dates: start: 20071023, end: 20071027
  3. CEFZON [Suspect]
     Indication: WOUND ABSCESS
     Route: 048
     Dates: start: 20071023, end: 20071027

REACTIONS (2)
  - DISSEMINATED INTRAVASCULAR COAGULATION [None]
  - MULTI-ORGAN FAILURE [None]
